FAERS Safety Report 9195338 (Version 1)
Quarter: 2013Q1

REPORT INFORMATION
  Report Type: Spontaneous
  Country: US (occurrence: US)
  Receive Date: 20130328
  Receipt Date: 20130328
  Transmission Date: 20140127
  Serious: No
  Sender: FDA-Public Use
  Company Number: US-ALLERGAN-1208157US

PATIENT
  Age: 75 Year
  Sex: Female

DRUGS (4)
  1. LUMIGAN [Suspect]
     Indication: INTRAOCULAR PRESSURE INCREASED
     Dosage: 2 GTT, QHS
     Route: 047
     Dates: start: 201203, end: 20120607
  2. DULERA INHALER [Concomitant]
     Indication: ASTHMA
     Dosage: 2 UNK, UNK
     Route: 048
  3. PRIMIDONE DAINIPPON [Concomitant]
     Indication: TREMOR
     Dosage: 50 MG, BID
     Route: 048
  4. NEXIUM                             /01479302/ [Concomitant]
     Indication: GASTROOESOPHAGEAL REFLUX DISEASE
     Dosage: 40 MG, QOD
     Route: 048

REACTIONS (5)
  - Eye irritation [Unknown]
  - Dry eye [Unknown]
  - Eye pruritus [Unknown]
  - Erythema of eyelid [Unknown]
  - Erythema [Unknown]
